FAERS Safety Report 4745745-9 (Version None)
Quarter: 2005Q3

REPORT INFORMATION
  Report Type: 
  Country: None (occurrence: None)
  Receive Date: 20050815
  Receipt Date: 20050815
  Transmission Date: 20060218
  Serious: Yes (Hospitalization)
  Sender: FDA-Public Use
  Company Number: None

PATIENT
  Sex: Female
  Weight: 57.6068 kg

DRUGS (13)
  1. TEQUIN [Suspect]
     Indication: RESPIRATORY TRACT INFECTION
     Dosage: 400 MG ORAL DAILY
     Route: 048
     Dates: start: 20050802, end: 20050808
  2. LASIX [Concomitant]
  3. K-DUR 10 [Concomitant]
  4. COUMADIN [Concomitant]
  5. LOPRESSOR [Concomitant]
  6. PROPFAENONE [Concomitant]
  7. PRILOSEC [Concomitant]
  8. ALLOPURINOL [Concomitant]
  9. MAG-OX [Concomitant]
  10. LACTULOE [Concomitant]
  11. DSS [Concomitant]
  12. TIMOPTIC [Concomitant]
  13. LUMIGAN [Concomitant]

REACTIONS (5)
  - BLOOD GLUCOSE INCREASED [None]
  - CEREBROVASCULAR ACCIDENT [None]
  - CONFUSIONAL STATE [None]
  - HALLUCINATION [None]
  - INFECTION [None]
